FAERS Safety Report 8536351-9 (Version None)
Quarter: 2012Q2

REPORT INFORMATION
  Report Type: 
  Country: None (occurrence: None)
  Receive Date: 20120412
  Receipt Date: 20100201
  Transmission Date: 20120825
  Serious: Yes (Other)
  Sender: FDA-Public Use
  Company Number: PHEH2008US04335

PATIENT
  Sex: Female

DRUGS (4)
  1. FOSAMAX [Suspect]
  2. RADIATION THERAPY (NO INGREDIENTS/SUBSTANCES) [Concomitant]
  3. AREDIA [Suspect]
  4. AMOXICILLIN [Concomitant]

REACTIONS (8)
  - DISABILITY [None]
  - ANXIETY [None]
  - DENTURE WEARER [None]
  - PAIN [None]
  - TOOTH EXTRACTION [None]
  - OSTEONECROSIS OF JAW [None]
  - INJURY [None]
  - ANHEDONIA [None]
